FAERS Safety Report 5936737-2 (Version None)
Quarter: 2008Q4

REPORT INFORMATION
  Report Type: 
  Country: None (occurrence: None)
  Receive Date: 20081030
  Receipt Date: 20081023
  Transmission Date: 20090506
  Serious: Yes (Hospitalization)
  Sender: FDA-Public Use
  Company Number: US-GILEAD-2008-0018697

PATIENT
  Sex: Female

DRUGS (7)
  1. LETAIRIS [Suspect]
     Indication: PULMONARY ARTERIAL HYPERTENSION
     Route: 048
     Dates: start: 20080523
  2. PREDNISONE TAB [Concomitant]
     Route: 048
  3. ALBUTEROL [Concomitant]
     Route: 055
  4. FLOVENT [Concomitant]
  5. SPIRIVA [Concomitant]
  6. SINGULAIR [Concomitant]
  7. ZYRTEC [Concomitant]

REACTIONS (3)
  - OEDEMA PERIPHERAL [None]
  - PNEUMONIA [None]
  - WEIGHT INCREASED [None]
